FAERS Safety Report 26194782 (Version 1)
Quarter: 2025Q4

REPORT INFORMATION
  Report Type: Spontaneous
  Country: US (occurrence: US)
  Receive Date: 20251224
  Receipt Date: 20251224
  Transmission Date: 20260117
  Serious: Yes (Hospitalization, Other)
  Sender: AUROBINDO
  Company Number: US-MLMSERVICE-20251204-PI738076-00033-1

PATIENT
  Age: 33 Year
  Sex: Female

DRUGS (1)
  1. ACETAMINOPHEN, ASPIRIN AND CAFFEINE [Suspect]
     Active Substance: ACETAMINOPHEN\ASPIRIN\CAFFEINE
     Indication: Migraine
     Dosage: 1 DOSAGE FORM
     Route: 065

REACTIONS (3)
  - Anaphylactic reaction [Recovered/Resolved]
  - Kounis syndrome [Recovered/Resolved]
  - NSAID exacerbated respiratory disease [Recovered/Resolved]
